FAERS Safety Report 9726449 (Version 1)
Quarter: 2013Q4

REPORT INFORMATION
  Report Type: Spontaneous
  Country: US (occurrence: None)
  Receive Date: 20131202
  Receipt Date: 20131202
  Transmission Date: 20140711
  Serious: Yes (Disabling)
  Sender: FDA-Public Use
  Company Number: None

PATIENT
  Age: 61 Year
  Sex: Male
  Weight: 90.72 kg

DRUGS (3)
  1. TIVICAY [Suspect]
     Indication: HIV INFECTION
     Route: 048
     Dates: start: 20131122, end: 20131127
  2. METFORMIN [Concomitant]
  3. TRUVADA [Concomitant]

REACTIONS (2)
  - Hypoglycaemia [None]
  - Drug interaction [None]
